FAERS Safety Report 22315029 (Version 1)
Quarter: 2023Q2

REPORT INFORMATION
  Report Type: Spontaneous
  Country: US (occurrence: None)
  Receive Date: 20230511
  Receipt Date: 20230511
  Transmission Date: 20230721
  Serious: Yes (Other)
  Sender: FDA-Public Use
  Company Number: None

PATIENT
  Age: 37 Year
  Sex: Female
  Weight: 51.75 kg

DRUGS (8)
  1. VALACYCLOVIR HYDROCHLORIDE [Suspect]
     Active Substance: VALACYCLOVIR HYDROCHLORIDE
     Indication: Fatigue
     Dosage: OTHER QUANTITY : 1 TABLET(S);?FREQUENCY : 3 TIMES A DAY;?
     Route: 048
  2. Prozac 40 mg [Concomitant]
  3. Ritalin 20 mg 3x daily [Concomitant]
  4. Risperdal 1mg nightly [Concomitant]
  5. IRON [Concomitant]
     Active Substance: IRON
  6. MAGNESIUM [Concomitant]
     Active Substance: MAGNESIUM
  7. Pre-natal Fish oil [Concomitant]
  8. Collagen peptides [Concomitant]

REACTIONS (3)
  - Fatigue [None]
  - Somnolence [None]
  - Decreased activity [None]

NARRATIVE: CASE EVENT DATE: 20230321
